FAERS Safety Report 22585797 (Version 1)
Quarter: 2023Q2

REPORT INFORMATION
  Report Type: Report from Study
  Country: BR (occurrence: BR)
  Receive Date: 20230610
  Receipt Date: 20230610
  Transmission Date: 20230721
  Serious: Yes (Other)
  Sender: FDA-Public Use
  Company Number: BR-002147023-NVSC2023BR131525

PATIENT
  Sex: Male

DRUGS (1)
  1. ENTRESTO [Suspect]
     Active Substance: SACUBITRIL\VALSARTAN
     Indication: Product used for unknown indication
     Dosage: 49/51 (UNIT NOT REPORTED) (STARTED APPROXIMATELY 3 YEARS AGO)
     Route: 065

REACTIONS (3)
  - Dementia [Unknown]
  - Cerebrovascular accident [Unknown]
  - Speech disorder [Unknown]
